FAERS Safety Report 18393258 (Version 2)
Quarter: 2021Q3

REPORT INFORMATION
  Report Type: Spontaneous
  Country: US (occurrence: US)
  Receive Date: 20201016
  Receipt Date: 20210706
  Transmission Date: 20211014
  Serious: Yes (Other)
  Sender: FDA-Public Use
  Company Number: US-SA-2020SA289253

PATIENT
  Age: 49 Year
  Sex: Female

DRUGS (1)
  1. ZANTAC [Suspect]
     Active Substance: RANITIDINE HYDROCHLORIDE
     Dosage: 75 MG, QW
     Dates: start: 200301, end: 201202

REACTIONS (2)
  - Colorectal cancer [Unknown]
  - Small intestine carcinoma [Unknown]

NARRATIVE: CASE EVENT DATE: 20120201
